FAERS Safety Report 17927612 (Version 2)
Quarter: 2020Q2

REPORT INFORMATION
  Report Type: Spontaneous
  Country: US (occurrence: US)
  Receive Date: 20200623
  Receipt Date: 20200624
  Transmission Date: 20200714
  Serious: Yes (Other)
  Sender: FDA-Public Use
  Company Number: US-GLOBAL BLOOD THERAPEUTICS INC-US-GBT-20-01165

PATIENT
  Age: 41 Year
  Sex: Male

DRUGS (2)
  1. OXBRYTA [Suspect]
     Active Substance: VOXELOTOR
     Indication: SICKLE CELL DISEASE
     Route: 048
     Dates: start: 20191227
  2. JADENU [Suspect]
     Active Substance: DEFERASIROX
     Indication: PRODUCT USED FOR UNKNOWN INDICATION

REACTIONS (6)
  - Dental operation [Unknown]
  - Product residue present [Unknown]
  - Haemoglobin decreased [Unknown]
  - Weight decreased [Unknown]
  - Frequent bowel movements [Unknown]
  - Drug interaction [Unknown]

NARRATIVE: CASE EVENT DATE: 202005
